FAERS Safety Report 10420194 (Version 1)
Quarter: 2014Q3

REPORT INFORMATION
  Report Type: Spontaneous
  Country: US (occurrence: None)
  Receive Date: 20140701
  Receipt Date: 20140701
  Transmission Date: 20150326
  Serious: No
  Sender: FDA-Public Use
  Company Number: 1000067320

PATIENT
  Age: 75 Year
  Sex: Female

DRUGS (6)
  1. OSTEO BI-FLEX (GLUCOSAMINE, CHONDROITIN) (GLUCOSAMINE, CHONDROITIN) [Concomitant]
  2. STATIN (NOS (STATIN (NOS)) (STATIN (NOS)) [Concomitant]
  3. ZYRTEC (CETIRIZINE HYDROCHLORIDE) (CETIRIZINE HYDROCHLORIDE) [Concomitant]
  4. LINZESS [Suspect]
     Active Substance: LINACLOTIDE
     Indication: CONSTIPATION
     Route: 048
     Dates: start: 201404
  5. VITAMIN E (VITAMIN E) (VITAMIN E) [Concomitant]
  6. FISH OIL (FISH OIL) (FISH OIL) [Concomitant]

REACTIONS (2)
  - Diarrhoea [None]
  - Abdominal pain upper [None]

NARRATIVE: CASE EVENT DATE: 201404
